FAERS Safety Report 8613464-4 (Version None)
Quarter: 2012Q3

REPORT INFORMATION
  Report Type: 
  Country: None (occurrence: None)
  Receive Date: 20120823
  Receipt Date: 20120809
  Transmission Date: 20120928
  Serious: Yes (Other)
  Sender: FDA-Public Use
  Company Number: FR-MYLANLABS-2012S1016419

PATIENT
  Age: 80 Year
  Sex: Female

DRUGS (1)
  1. INDOMETHACIN [Suspect]
     Dosage: TOPICAL OCULAR; 1WK BEFORE + 3WKS AFTER YAG LASER CAPSULOTOMY
     Route: 047

REACTIONS (4)
  - CORNEAL PERFORATION [None]
  - ANTERIOR CHAMBER DISORDER [None]
  - ULCERATIVE KERATITIS [None]
  - CORNEAL DISORDER [None]
